FAERS Safety Report 6690279-8 (Version None)
Quarter: 2010Q2

REPORT INFORMATION
  Report Type: 
  Country: None (occurrence: None)
  Receive Date: 20100421
  Receipt Date: 20100414
  Transmission Date: 20101027
  Serious: No
  Sender: FDA-Public Use
  Company Number: DE-ASTRAZENECA-2010SE16774

PATIENT
  Age: 10310 Day
  Sex: Female

DRUGS (4)
  1. SEROQUEL [Suspect]
     Indication: AFFECT LABILITY
     Route: 048
     Dates: start: 20100301
  2. SEROQUEL [Suspect]
     Indication: DEPRESSION
     Route: 048
     Dates: start: 20100301
  3. VENLAFAXIN [Concomitant]
     Indication: AFFECT LABILITY
     Route: 048
     Dates: start: 20100301
  4. VENLAFAXIN [Concomitant]
     Indication: DEPRESSION
     Route: 048
     Dates: start: 20100301

REACTIONS (1)
  - NEUTROPENIA [None]
